FAERS Safety Report 8061545-9 (Version None)
Quarter: 2012Q1

REPORT INFORMATION
  Report Type: 
  Country: None (occurrence: None)
  Receive Date: 20120120
  Receipt Date: 20120112
  Transmission Date: 20120608
  Serious: Yes (Other)
  Sender: FDA-Public Use
  Company Number: PHHY2012KR003161

PATIENT
  Age: 57 Year
  Sex: Male

DRUGS (1)
  1. METRONIDAZOLE [Suspect]
     Indication: HEPATIC ENCEPHALOPATHY
     Dosage: 750 MG, QD

REACTIONS (6)
  - FALL [None]
  - CHEST PAIN [None]
  - ENCEPHALOPATHY [None]
  - DYSARTHRIA [None]
  - ATAXIA [None]
  - CONFUSIONAL STATE [None]
